FAERS Safety Report 7346981-8 (Version None)
Quarter: 2011Q1

REPORT INFORMATION
  Report Type: 
  Country: None (occurrence: None)
  Receive Date: 20110311
  Receipt Date: 20110225
  Transmission Date: 20110831
  Serious: Yes (Death, Other)
  Sender: FDA-Public Use
  Company Number: PHHY2011NO15600

PATIENT
  Sex: Female

DRUGS (4)
  1. METFORMIN [Concomitant]
  2. ANGIOTENSIN II ANTAGONISTS [Concomitant]
  3. PHOSPHORAL [Concomitant]
  4. DIOVAN [Suspect]

REACTIONS (9)
  - DEATH [None]
  - DEHYDRATION [None]
  - ISCHAEMIC STROKE [None]
  - DIARRHOEA [None]
  - MALAISE [None]
  - RENAL FAILURE [None]
  - VOMITING [None]
  - LACTIC ACIDOSIS [None]
  - COMA [None]
